FAERS Safety Report 23673471 (Version 4)
Quarter: 2025Q1

REPORT INFORMATION
  Report Type: Report from Study
  Country: IN (occurrence: IN)
  Receive Date: 20240326
  Receipt Date: 20250221
  Transmission Date: 20250409
  Serious: Yes (Hospitalization, Other)
  Sender: NOVARTIS
  Company Number: IN-002147023-NVSC2024IN051306

PATIENT
  Age: 70 Year
  Sex: Female

DRUGS (8)
  1. RIBOCICLIB [Suspect]
     Active Substance: RIBOCICLIB
     Indication: Breast cancer metastatic
     Route: 048
  2. RIBOCICLIB [Suspect]
     Active Substance: RIBOCICLIB
     Indication: Hormone receptor positive HER2 negative breast cancer
     Dosage: 400 MG, QD
     Route: 048
     Dates: start: 20231223
  3. RIBOCICLIB [Suspect]
     Active Substance: RIBOCICLIB
     Dosage: 440 MG, QD
     Route: 048
  4. ELTROMBOPAG OLAMINE [Suspect]
     Active Substance: ELTROMBOPAG OLAMINE
     Indication: Breast cancer metastatic
     Dosage: 50 MG, QD
     Route: 065
     Dates: start: 20231223
  5. ELTROMBOPAG OLAMINE [Suspect]
     Active Substance: ELTROMBOPAG OLAMINE
     Indication: Hormone receptor positive HER2 negative breast cancer
  6. LUTROZOLE [Concomitant]
     Indication: Product used for unknown indication
     Dosage: 2.5 MG, QD
     Route: 065
  7. RIVA-ZIDE [Concomitant]
     Indication: Product used for unknown indication
     Route: 065
  8. NEUKINE [Concomitant]
     Indication: Product used for unknown indication
     Route: 065

REACTIONS (10)
  - White blood cell count decreased [Unknown]
  - Haemoglobin decreased [Unknown]
  - Pallor [Unknown]
  - Asthenia [Unknown]
  - Neoplasm malignant [Unknown]
  - Bone marrow disorder [Unknown]
  - Platelet count decreased [Unknown]
  - Fatigue [Unknown]
  - Neutrophil count abnormal [Unknown]
  - Product use in unapproved indication [Unknown]

NARRATIVE: CASE EVENT DATE: 20240219
